FAERS Safety Report 7362701-5 (Version None)
Quarter: 2011Q1

REPORT INFORMATION
  Report Type: 
  Country: None (occurrence: None)
  Receive Date: 20110321
  Receipt Date: 20110310
  Transmission Date: 20110831
  Serious: Yes (Hospitalization, Other)
  Sender: FDA-Public Use
  Company Number: US-BIOGENIDEC-2011BI004097

PATIENT
  Age: 56 Year
  Sex: Female

DRUGS (4)
  1. AVONEX [Suspect]
     Route: 030
     Dates: start: 19990201, end: 20050601
  2. AVONEX [Suspect]
     Indication: MULTIPLE SCLEROSIS
     Route: 030
     Dates: start: 20070622
  3. AVONEX [Suspect]
     Route: 030
     Dates: start: 20060811, end: 20070301
  4. DEPAKOTE [Concomitant]
     Dates: start: 20080101

REACTIONS (5)
  - HEPATIC INFECTION [None]
  - PANCREAS INFECTION [None]
  - MYOCARDIAL INFARCTION [None]
  - ELECTROCARDIOGRAM ABNORMAL [None]
  - CARDIAC FAILURE CONGESTIVE [None]
